FAERS Safety Report 23624550 (Version 2)
Quarter: 2024Q1

REPORT INFORMATION
  Report Type: Spontaneous
  Country: JP (occurrence: JP)
  Receive Date: 20240313
  Receipt Date: 20240328
  Transmission Date: 20240410
  Serious: Yes (Other)
  Sender: FDA-Public Use
  Company Number: JP-SA-2024SA030006

PATIENT
  Age: 44 Year
  Sex: Female
  Weight: 39.5 kg

DRUGS (22)
  1. DUPIXENT [Suspect]
     Active Substance: DUPILUMAB
     Indication: Chronic eosinophilic rhinosinusitis
     Dosage: 300 MG, QOW
     Route: 058
     Dates: start: 20210819, end: 20220530
  2. DUPIXENT [Suspect]
     Active Substance: DUPILUMAB
     Dosage: 300 MG, Q4W
     Route: 058
     Dates: start: 20220531, end: 20221004
  3. DUPIXENT [Suspect]
     Active Substance: DUPILUMAB
     Dosage: 300 MG, QOW
     Route: 058
     Dates: start: 20230316, end: 20230724
  4. DUPIXENT [Suspect]
     Active Substance: DUPILUMAB
     Dosage: 300 MG, Q3W
     Route: 058
     Dates: start: 20230725, end: 20231009
  5. DUPIXENT [Suspect]
     Active Substance: DUPILUMAB
     Dosage: 300 MG, Q4W
     Route: 058
     Dates: start: 20231010, end: 20231121
  6. MONTELUKAST SODIUM [Concomitant]
     Active Substance: MONTELUKAST SODIUM
     Indication: Hypersensitivity
     Dosage: DAILY DOSE: 10 MG
     Route: 048
  7. LEVOCETIRIZINE DIHYDROCHLORIDE [Concomitant]
     Active Substance: LEVOCETIRIZINE DIHYDROCHLORIDE
     Indication: Hypersensitivity
     Dosage: DAILY DOSE: 5 MG
     Route: 048
  8. PREDNISOLONE [Concomitant]
     Active Substance: PREDNISOLONE
     Indication: Hypersensitivity
     Dosage: INCREASED OR DECREASED DEPENDING ON THE CONDITION
     Route: 048
  9. PREDNISOLONE [Concomitant]
     Active Substance: PREDNISOLONE
     Indication: Neuralgia
     Dosage: 3 MG
     Route: 048
  10. PREDNISOLONE [Concomitant]
     Active Substance: PREDNISOLONE
     Indication: Arthralgia
     Dosage: 4 MG
     Route: 048
  11. PREDNISOLONE [Concomitant]
     Active Substance: PREDNISOLONE
     Indication: Musculoskeletal chest pain
     Dosage: 10 MG
     Route: 048
  12. PREDNISOLONE [Concomitant]
     Active Substance: PREDNISOLONE
     Indication: Chronic eosinophilic rhinosinusitis
     Dosage: 9 MG
     Route: 048
  13. PREDNISOLONE [Concomitant]
     Active Substance: PREDNISOLONE
     Indication: Arthralgia
     Dosage: 8 MG
     Route: 048
  14. PREDNISOLONE [Concomitant]
     Active Substance: PREDNISOLONE
     Dosage: 7 MG
     Route: 048
  15. PREDNISOLONE [Concomitant]
     Active Substance: PREDNISOLONE
     Dosage: LOW DOSE
     Route: 048
  16. PREDNISOLONE [Concomitant]
     Active Substance: PREDNISOLONE
     Dosage: 8 MG
     Route: 048
  17. MOMETASONE FUROATE [Concomitant]
     Active Substance: MOMETASONE FUROATE
     Indication: Hypersensitivity
     Dosage: DAILY DOSE: 2 SPRAYS ON THE RIGHT AND LEFT
     Route: 045
  18. CELECOXIB [Concomitant]
     Active Substance: CELECOXIB
     Indication: Headache
     Dosage: 200 MG, WHEN HAVING PAIN
     Route: 048
  19. CELECOXIB [Concomitant]
     Active Substance: CELECOXIB
     Indication: Drug hypersensitivity
     Dosage: 200 MG
     Route: 048
  20. CELECOXIB [Concomitant]
     Active Substance: CELECOXIB
     Indication: Arthralgia
  21. CELECOXIB [Concomitant]
     Active Substance: CELECOXIB
     Indication: Musculoskeletal chest pain
  22. BUDEFORU [Concomitant]
     Indication: Asthma
     Dosage: INCREASED OR DECREASED DEPENDING ON THE CONDITION
     Route: 055

REACTIONS (7)
  - Neuralgia [Not Recovered/Not Resolved]
  - Musculoskeletal chest pain [Not Recovered/Not Resolved]
  - Arthralgia [Recovered/Resolved]
  - Arthralgia [Recovered/Resolved]
  - Arthritis [Unknown]
  - Eosinophil count increased [Not Recovered/Not Resolved]
  - Inappropriate schedule of product administration [Unknown]

NARRATIVE: CASE EVENT DATE: 20220801
